FAERS Safety Report 9307745 (Version 1)
Quarter: 2013Q2

REPORT INFORMATION
  Report Type: Spontaneous
  Country: US (occurrence: US)
  Receive Date: 20130524
  Receipt Date: 20130524
  Transmission Date: 20140414
  Serious: No
  Sender: FDA-Public Use
  Company Number: US-VERTEX PHARMACEUTICALS INC-2013-006358

PATIENT
  Age: 48 Year
  Sex: Female
  Weight: 82 kg

DRUGS (3)
  1. INCIVEK [Suspect]
     Indication: HEPATITIS C
     Dosage: 750 MG, TID
     Route: 048
     Dates: start: 20130519
  2. PEGASYS [Suspect]
     Indication: HEPATITIS C
     Dosage: UNK
     Dates: start: 20130519
  3. COPEGUS [Suspect]
     Indication: HEPATITIS C
     Dosage: UNK
     Dates: start: 20130519

REACTIONS (3)
  - Pain [Not Recovered/Not Resolved]
  - Crying [Unknown]
  - Fatigue [Not Recovered/Not Resolved]
